FAERS Safety Report 23224800 (Version 3)
Quarter: 2023Q4

REPORT INFORMATION
  Report Type: Report from Study
  Country: US (occurrence: US)
  Receive Date: 20231124
  Receipt Date: 20231201
  Transmission Date: 20240110
  Serious: Yes (Hospitalization)
  Sender: FDA-Public Use
  Company Number: US-ABBVIE-5505229

PATIENT
  Sex: Female

DRUGS (2)
  1. HUMIRA [Suspect]
     Active Substance: ADALIMUMAB
     Indication: Psoriasis
     Dosage: CITRATE FREE; FORM STRENGTH: 40  MG?START DATE 2023
     Route: 058
  2. HUMIRA [Suspect]
     Active Substance: ADALIMUMAB
     Dosage: LAST ADMINISTRATION -2023; CF; FORM STRENGTH: 40  MG
     Route: 058
     Dates: start: 20230621

REACTIONS (9)
  - Nausea [Recovering/Resolving]
  - Pruritus allergic [Recovering/Resolving]
  - Diarrhoea [Unknown]
  - Blood sodium decreased [Recovering/Resolving]
  - Urinary tract infection [Recovered/Resolved]
  - Psoriasis [Recovering/Resolving]
  - Vomiting [Unknown]
  - Asthenia [Recovering/Resolving]
  - Urinary tract infection [Unknown]

NARRATIVE: CASE EVENT DATE: 20230101
